FAERS Safety Report 5698177-3 (Version None)
Quarter: 2008Q2

REPORT INFORMATION
  Report Type: 
  Country: None (occurrence: None)
  Receive Date: 20080408
  Receipt Date: 20080314
  Transmission Date: 20081010
  Serious: Yes (Other)
  Sender: FDA-Public Use
  Company Number: PT-PFIZER INC-2008010914

PATIENT
  Sex: Male
  Weight: 85 kg

DRUGS (2)
  1. CHAMPIX [Suspect]
     Indication: SMOKING CESSATION THERAPY
     Route: 048
     Dates: start: 20071130, end: 20080124
  2. EZETIMIBE/SIMVASTATIN [Concomitant]
     Indication: DYSLIPIDAEMIA
     Route: 048
     Dates: start: 20071124, end: 20071224

REACTIONS (2)
  - SOMNOLENCE [None]
  - TRANSAMINASES INCREASED [None]
